FAERS Safety Report 6972820-0 (Version None)
Quarter: 2010Q3

REPORT INFORMATION
  Report Type: 
  Country: None (occurrence: None)
  Receive Date: 20100909
  Receipt Date: 20100827
  Transmission Date: 20110219
  Serious: Yes (Other)
  Sender: FDA-Public Use
  Company Number: BE-ELI_LILLY_AND_COMPANY-BE201008008469

PATIENT
  Sex: Female

DRUGS (6)
  1. CYMBALTA [Suspect]
     Indication: DEPRESSION
     Dosage: 60 MG, DAILY (1/D)
     Route: 048
     Dates: start: 20100511, end: 20100722
  2. OLANZAPINE [Suspect]
     Indication: PSYCHOTIC DISORDER
     Dosage: 5 MG, DAILY (1/D)
     Route: 048
     Dates: start: 20100428, end: 20100609
  3. LORAMET [Concomitant]
     Indication: PSYCHOTIC DISORDER
     Dosage: 2 MG, DAILY (1/D)
     Route: 048
     Dates: start: 20100428
  4. XANAX [Concomitant]
     Indication: ANXIETY DISORDER
     Dosage: 2 MG, DAILY (1/D)
     Route: 048
     Dates: start: 20100507, end: 20100627
  5. LORAZEPAM [Concomitant]
     Indication: ANXIETY DISORDER
     Dosage: 2.5 MG, 3/D
     Route: 048
     Dates: start: 20100511, end: 20100609
  6. DEANXIT [Concomitant]
     Indication: ANXIETY DISORDER
     Dosage: UNK, DAILY (1/D)
     Route: 048
     Dates: start: 20100510

REACTIONS (1)
  - INAPPROPRIATE ANTIDIURETIC HORMONE SECRETION [None]
